FAERS Safety Report 4883662-4 (Version None)
Quarter: 2006Q1

REPORT INFORMATION
  Report Type: 
  Country: None (occurrence: None)
  Receive Date: 20060118
  Receipt Date: 20060111
  Transmission Date: 20060701
  Serious: Yes (Hospitalization)
  Sender: FDA-Public Use
  Company Number: FR-SANOFI-SYNTHELABO-A02200600120

PATIENT
  Age: 26 Year
  Sex: Female

DRUGS (2)
  1. ZOLPIDEM TARTRATE [Suspect]
     Indication: DRUG ABUSER
     Dosage: UNK
     Route: 023
  2. METHADONE [Concomitant]
     Indication: DRUG DEPENDENCE
     Dosage: UNK
     Route: 048

REACTIONS (4)
  - ABSCESS [None]
  - FISTULA [None]
  - INCORRECT ROUTE OF DRUG ADMINISTRATION [None]
  - INTENTIONAL DRUG MISUSE [None]
